FAERS Safety Report 10613859 (Version 2)
Quarter: 2015Q2

REPORT INFORMATION
  Report Type: Spontaneous
  Country: US (occurrence: US)
  Receive Date: 20141128
  Receipt Date: 20150414
  Transmission Date: 20150821
  Serious: Yes (Other)
  Sender: FDA-Public Use
  Company Number: US-PFIZER INC-2014323974

PATIENT
  Age: 67 Year
  Sex: Female

DRUGS (2)
  1. AMLODIPINE BESILATE [Suspect]
     Active Substance: AMLODIPINE BESYLATE
     Dosage: 10 MG, DAILY
  2. DIOVAN [Concomitant]
     Active Substance: VALSARTAN
     Dosage: 160 MG, UNK

REACTIONS (3)
  - Feeling abnormal [Recovered/Resolved]
  - Drug ineffective [Unknown]
  - Hypertension [Recovered/Resolved]
